FAERS Safety Report 5102762-7 (Version None)
Quarter: 2006Q3

REPORT INFORMATION
  Report Type: 
  Country: None (occurrence: None)
  Receive Date: 20060907
  Receipt Date: 20060818
  Transmission Date: 20061208
  Serious: Yes (Hospitalization)
  Sender: FDA-Public Use
  Company Number: HU200608004116

PATIENT
  Age: 66 Year
  Sex: Female

DRUGS (4)
  1. RALOXIFENE HCL [Suspect]
     Indication: OSTEOPOROSIS POSTMENOPAUSAL
     Dosage: 60 MG, DAILY (1/D), ORAL
     Route: 048
     Dates: start: 20030101, end: 20060629
  2. BISOPROLOL FUMARATE [Concomitant]
  3. RAMACE (RAMIPRIL) [Concomitant]
  4. INNOGEM (GEMFIBROZIL) [Concomitant]

REACTIONS (1)
  - PANCREATITIS ACUTE [None]
